FAERS Safety Report 4487890-1 (Version None)
Quarter: 2004Q4

REPORT INFORMATION
  Report Type: 
  Country: None (occurrence: None)
  Receive Date: 20041025
  Receipt Date: 20041014
  Transmission Date: 20050328
  Serious: Yes (Other)
  Sender: FDA-Public Use
  Company Number: STA-AE-04-MTX-458

PATIENT
  Age: 65 Year
  Sex: Female

DRUGS (1)
  1. RHEUMATREX [Suspect]
     Indication: RHEUMATOID ARTHRITIS
     Dosage: 10 MG / 4 DAYS/ MONTH, ORAL
     Route: 048
     Dates: start: 19930301, end: 20020901

REACTIONS (2)
  - DIFFUSE LARGE B-CELL LYMPHOMA STAGE IV [None]
  - PNEUMONIA [None]
